FAERS Safety Report 15159643 (Version 3)
Quarter: 2018Q4

REPORT INFORMATION
  Report Type: Spontaneous
  Country: US (occurrence: US)
  Receive Date: 20180718
  Receipt Date: 20181203
  Transmission Date: 20190204
  Serious: No
  Sender: FDA-Public Use
  Company Number: US-SA-2018SA194762

PATIENT
  Age: 63 Year

DRUGS (1)
  1. AUBAGIO [Suspect]
     Active Substance: TERIFLUNOMIDE
     Indication: MULTIPLE SCLEROSIS
     Dosage: 14 MG, QD
     Route: 048
     Dates: start: 201805

REACTIONS (2)
  - Pain in extremity [Unknown]
  - Coagulopathy [Unknown]

NARRATIVE: CASE EVENT DATE: 201807
